FAERS Safety Report 6201333-9 (Version None)
Quarter: 2009Q2

REPORT INFORMATION
  Report Type: 
  Country: None (occurrence: None)
  Receive Date: 20090526
  Receipt Date: 20090513
  Transmission Date: 20091009
  Serious: Yes (Hospitalization)
  Sender: FDA-Public Use
  Company Number: RU-ROCHE-514663

PATIENT
  Sex: Female
  Weight: 70 kg

DRUGS (4)
  1. CAPECITABINE [Suspect]
     Route: 048
     Dates: start: 20070515
  2. DOCETAXEL [Suspect]
     Dosage: DOSAGE FORM REPORTED AS VIALS.
     Route: 042
     Dates: start: 20070515
  3. CIPROFLOXACIN [Concomitant]
     Dates: start: 20070901, end: 20071010
  4. DROTAVERINE [Concomitant]
     Dates: start: 20070927, end: 20071010

REACTIONS (1)
  - CALCULUS URINARY [None]
